FAERS Safety Report 21021072 (Version 1)
Quarter: 2022Q2

REPORT INFORMATION
  Report Type: Spontaneous
  Country: US (occurrence: None)
  Receive Date: 20220629
  Receipt Date: 20220629
  Transmission Date: 20220721
  Serious: Yes (Other)
  Sender: FDA-Public Use
  Company Number: US-ROCHE-3124321

PATIENT
  Sex: Female
  Weight: 67.1 kg

DRUGS (3)
  1. RITUXAN [Suspect]
     Active Substance: RITUXIMAB
     Indication: Rheumatoid arthritis
     Route: 065
  2. TYVASO [Suspect]
     Active Substance: TREPROSTINIL
     Indication: Pulmonary arterial hypertension
     Dosage: INHALATION DEVICE, 54-72 UG (9-12 BREATH), INHALATION, CONCENTRATION 0.6 MG/ML
     Route: 055
     Dates: start: 20180611
  3. TADALAFIL [Concomitant]
     Active Substance: TADALAFIL

REACTIONS (2)
  - Therapy non-responder [Unknown]
  - Rheumatoid arthritis [Unknown]
